FAERS Safety Report 10662662 (Version 2)
Quarter: 2014Q4

REPORT INFORMATION
  Report Type: Report from Study
  Country: DE (occurrence: DE)
  Receive Date: 20141218
  Receipt Date: 20141218
  Transmission Date: 20150529
  Serious: Yes (Other)
  Sender: FDA-Public Use
  Company Number: DE-EMD SERONO-7309741

PATIENT
  Age: 33 Year
  Sex: Female

DRUGS (2)
  1. REBIF [Suspect]
     Active Substance: INTERFERON BETA-1A
     Indication: MULTIPLE SCLEROSIS
     Route: 058
     Dates: start: 2011, end: 201401
  2. VIGANTOLETTEN [Concomitant]
     Active Substance: CHOLECALCIFEROL
     Indication: PRODUCT USED FOR UNKNOWN INDICATION
     Route: 048

REACTIONS (3)
  - Live birth [Recovered/Resolved]
  - Placental insufficiency [Recovered/Resolved]
  - Maternal exposure timing unspecified [Recovered/Resolved]

NARRATIVE: CASE EVENT DATE: 20141014
